FAERS Safety Report 6262169-6 (Version None)
Quarter: 2009Q3

REPORT INFORMATION
  Report Type: 
  Country: None (occurrence: None)
  Receive Date: 20090708
  Receipt Date: 20090708
  Transmission Date: 20100115
  Serious: Yes (Hospitalization)
  Sender: FDA-Public Use
  Company Number: None

PATIENT
  Age: 65 Year
  Sex: Female
  Weight: 81.6475 kg

DRUGS (1)
  1. CYMBALTA [Suspect]
     Indication: FIBROMYALGIA
     Dosage: 6 GRAINS OF CAPSULE 1 X A.M. YOGURT
     Dates: start: 20090505, end: 20090617

REACTIONS (5)
  - DYSPNOEA [None]
  - ECZEMA [None]
  - HEADACHE [None]
  - LOSS OF CONSCIOUSNESS [None]
  - PRURITUS [None]
